FAERS Safety Report 22204021 (Version 1)
Quarter: 2023Q2

REPORT INFORMATION
  Report Type: Report from Study
  Country: US (occurrence: US)
  Receive Date: 20230412
  Receipt Date: 20230412
  Transmission Date: 20230721
  Serious: Yes (Other)
  Sender: FDA-Public Use
  Company Number: US-MYLANLABS-2023M1038190

PATIENT

DRUGS (2)
  1. TEMOZOLOMIDE [Suspect]
     Active Substance: TEMOZOLOMIDE
     Indication: Neuroendocrine carcinoma metastatic
     Dosage: 150 MILLIGRAM/SQ. METER, QD; ON DAYS 1-5 OF A 28 DAY CYCLE
     Route: 048
  2. NIVOLUMAB [Suspect]
     Active Substance: NIVOLUMAB
     Indication: Neuroendocrine carcinoma metastatic
     Dosage: 480 MILLIGRAM, EVERY 4 WEEKS ~AS A 30 MINUTE INFUSION
     Route: 065

REACTIONS (2)
  - Pulmonary haemorrhage [Unknown]
  - Off label use [Unknown]
